FAERS Safety Report 4349475-7 (Version None)
Quarter: 2004Q2

REPORT INFORMATION
  Report Type: 
  Country: None (occurrence: None)
  Receive Date: 20040426
  Receipt Date: 20040413
  Transmission Date: 20050107
  Serious: Yes (Hospitalization)
  Sender: FDA-Public Use
  Company Number: 04P-056-0250277-00

PATIENT
  Age: 73 Year
  Sex: Male

DRUGS (10)
  1. VALPROATE SODIUM [Suspect]
     Indication: EPILEPSY
     Dosage: 1000 MG 1 IN 1 D ORAL
     Route: 048
     Dates: start: 20040102, end: 20040120
  2. TIANEPTINE [Suspect]
     Dosage: 12.5 MG 2 IN 1 D PER ORAL
     Route: 048
     Dates: start: 20040112, end: 20040120
  3. IRBESARTAN [Concomitant]
  4. CLOBAZAM [Concomitant]
  5. AMLODIPINE BESYLATE [Concomitant]
  6. INSULIN GLARGINE [Concomitant]
  7. ACETYLSALICYLATE LYSINE [Concomitant]
  8. ZOCOR [Concomitant]
  9. FLUINDIONE [Concomitant]
  10. DIGOXIN [Concomitant]

REACTIONS (12)
  - ABASIA [None]
  - APRAXIA [None]
  - CONFUSIONAL STATE [None]
  - COORDINATION ABNORMAL [None]
  - DIFFICULTY IN WALKING [None]
  - DISTURBANCE IN ATTENTION [None]
  - DRUG INTERACTION [None]
  - ELECTROENCEPHALOGRAM ABNORMAL [None]
  - ENCEPHALOPATHY [None]
  - GENERAL PHYSICAL HEALTH DETERIORATION [None]
  - HYPERAMMONAEMIA [None]
  - SOMNOLENCE [None]
